FAERS Safety Report 8271295-1 (Version None)
Quarter: 2012Q2

REPORT INFORMATION
  Report Type: 
  Country: None (occurrence: None)
  Receive Date: 20120406
  Receipt Date: 20120322
  Transmission Date: 20120825
  Serious: Yes (Life-Threatening, Other)
  Sender: FDA-Public Use
  Company Number: JP-2012-10245

PATIENT
  Age: 69 Year
  Sex: Female
  Weight: 43 kg

DRUGS (7)
  1. PLETAL [Suspect]
     Indication: BRADYCARDIA
     Dosage: 100 MG MILLIGRAM(S), BID, ORAL, 100 MG MILLIGRAM(S), DAILY DOSE, ORAL
     Route: 048
     Dates: start: 20111222, end: 20111228
  2. PLETAL [Suspect]
     Indication: BRADYCARDIA
     Dosage: 100 MG MILLIGRAM(S), BID, ORAL, 100 MG MILLIGRAM(S), DAILY DOSE, ORAL
     Route: 048
     Dates: start: 20111220, end: 20111221
  3. ALPRAZOLAM [Concomitant]
  4. LOSARTAN POTASSIUM [Concomitant]
  5. WARFARIN SODIUM [Concomitant]
  6. TAKEPRON (LANSOPRAZOLE) ORODISPERSIBLE [Concomitant]
  7. ALDACTONE [Concomitant]

REACTIONS (6)
  - VENTRICULAR FIBRILLATION [None]
  - CONDITION AGGRAVATED [None]
  - TORSADE DE POINTES [None]
  - CARDIAC ARREST [None]
  - ATRIAL FIBRILLATION [None]
  - BRADYCARDIA [None]
